FAERS Safety Report 18788160 (Version 1)
Quarter: 2021Q1

REPORT INFORMATION
  Report Type: Spontaneous
  Country: US (occurrence: US)
  Receive Date: 20210125
  Receipt Date: 20210125
  Transmission Date: 20210419
  Serious: No
  Sender: FDA-Public Use
  Company Number: US-ROCHE-2690594

PATIENT
  Age: 34 Year
  Sex: Female

DRUGS (1)
  1. RITUXAN [Suspect]
     Active Substance: RITUXIMAB
     Indication: IMMUNE THROMBOCYTOPENIA
     Dosage: ONGOING: NO; ONCE A WEEK FOR 4 WEEKS
     Route: 042
     Dates: start: 2018, end: 2018

REACTIONS (3)
  - Pregnancy [Unknown]
  - Off label use [Unknown]
  - Intentional product use issue [Unknown]
